FAERS Safety Report 17517172 (Version 1)
Quarter: 2020Q1

REPORT INFORMATION
  Report Type: Spontaneous
  Country: US (occurrence: US)
  Receive Date: 20200308
  Receipt Date: 20200308
  Transmission Date: 20200409
  Serious: Yes (Disabling)
  Sender: FDA-Public Use
  Company Number: None

PATIENT
  Age: 18 Year
  Sex: Female

DRUGS (2)
  1. SINGULAIR [Suspect]
     Active Substance: MONTELUKAST SODIUM
     Indication: ASTHMA
  2. SINGULAIR [Suspect]
     Active Substance: MONTELUKAST SODIUM
     Indication: HYPERSENSITIVITY

REACTIONS (8)
  - Anxiety [None]
  - Self esteem decreased [None]
  - Disturbance in attention [None]
  - Intentional self-injury [None]
  - Memory impairment [None]
  - Psychiatric symptom [None]
  - Insomnia [None]
  - Obsessive-compulsive symptom [None]
